FAERS Safety Report 21933173 (Version 2)
Quarter: 2023Q2

REPORT INFORMATION
  Report Type: Report from Study
  Country: US (occurrence: US)
  Receive Date: 20230131
  Receipt Date: 20230413
  Transmission Date: 20230722
  Serious: No
  Sender: FDA-Public Use
  Company Number: US-BRISTOL-MYERS SQUIBB COMPANY-2023-014867

PATIENT
  Age: 68 Year
  Sex: Male

DRUGS (1)
  1. ZEPOSIA [Suspect]
     Active Substance: OZANIMOD HYDROCHLORIDE
     Indication: Multiple sclerosis
     Dosage: FREQ : TAKE 1 CAPSULE BY MOUTH ONCE DAILY
     Route: 048
     Dates: start: 20221103

REACTIONS (5)
  - Headache [Unknown]
  - Feeling abnormal [Unknown]
  - Pain in extremity [Unknown]
  - Abdominal hernia [Unknown]
  - Multiple sclerosis relapse [Unknown]
